FAERS Safety Report 10379954 (Version 1)
Quarter: 2014Q3

REPORT INFORMATION
  Report Type: Report from Study
  Country: GB (occurrence: GB)
  Receive Date: 20140813
  Receipt Date: 20140813
  Transmission Date: 20150326
  Serious: Yes (Hospitalization, Other)
  Sender: FDA-Public Use
  Company Number: GB-ABBVIE-14K-167-1269810-00

PATIENT
  Age: 27 Year
  Sex: Female
  Weight: 107 kg

DRUGS (2)
  1. HUMIRA [Suspect]
     Active Substance: ADALIMUMAB
     Indication: PSORIASIS
     Route: 058
     Dates: start: 20121218
  2. TRANEXAMIC ACID. [Concomitant]
     Active Substance: TRANEXAMIC ACID
     Indication: PRODUCT USED FOR UNKNOWN INDICATION
     Dates: start: 20130703

REACTIONS (3)
  - Incorrect product storage [Unknown]
  - Subarachnoid haemorrhage [Recovered/Resolved]
  - Poor quality drug administered [Unknown]

NARRATIVE: CASE EVENT DATE: 201307
